FAERS Safety Report 5501220-5 (Version None)
Quarter: 2007Q4

REPORT INFORMATION
  Report Type: 
  Country: None (occurrence: None)
  Receive Date: 20071029
  Receipt Date: 20071018
  Transmission Date: 20080405
  Serious: Yes (Other)
  Sender: FDA-Public Use
  Company Number: US-AMGEN-KDL248863

PATIENT
  Sex: Female

DRUGS (6)
  1. PROCRIT [Suspect]
     Indication: ANAEMIA
     Route: 065
     Dates: start: 20070901
  2. PREMARIN [Concomitant]
     Dates: start: 20061001
  3. GABAPENTIN [Concomitant]
  4. DIOVAN [Concomitant]
     Dates: end: 20071018
  5. NITROGLYCERIN [Concomitant]
  6. INSULIN [Concomitant]

REACTIONS (7)
  - ADVERSE DRUG REACTION [None]
  - AGITATION [None]
  - BLOOD GLUCOSE DECREASED [None]
  - DYSPNOEA [None]
  - HYPERHIDROSIS [None]
  - INJECTION SITE PAIN [None]
  - TACHYCARDIA [None]
